FAERS Safety Report 13164075 (Version 2)
Quarter: 2017Q1

REPORT INFORMATION
  Report Type: Spontaneous
  Country: FR (occurrence: FR)
  Receive Date: 20170130
  Receipt Date: 20170224
  Transmission Date: 20170428
  Serious: Yes (Other)
  Sender: FDA-Public Use
  Company Number: FR-SA-2017SA012194

PATIENT
  Age: 83 Year
  Sex: Female
  Weight: 60 kg

DRUGS (5)
  1. PLAVIX [Suspect]
     Active Substance: CLOPIDOGREL BISULFATE
     Indication: CORONARY ARTERY STENOSIS
     Route: 048
     Dates: start: 20121024
  2. FLUDEX [Concomitant]
     Active Substance: INDAPAMIDE
  3. INEGY [Concomitant]
     Active Substance: EZETIMIBE\SIMVASTATIN
  4. DETENSIEL [Concomitant]
     Active Substance: BISOPROLOL FUMARATE
  5. COVERAM [Concomitant]
     Active Substance: AMLODIPINE\PERINDOPRIL

REACTIONS (3)
  - Bowen^s disease [Unknown]
  - Limb injury [Unknown]
  - Mucosal pigmentation [Unknown]

NARRATIVE: CASE EVENT DATE: 2016
